FAERS Safety Report 4406328-3 (Version None)
Quarter: 2004Q3

REPORT INFORMATION
  Report Type: 
  Country: None (occurrence: None)
  Receive Date: 20040723
  Receipt Date: 20030622
  Transmission Date: 20050211
  Serious: No
  Sender: FDA-Public Use
  Company Number: US-GLAXOSMITHKLINE-A0413554A

PATIENT
  Sex: Female

DRUGS (9)
  1. AVANDIA [Suspect]
     Route: 048
     Dates: start: 20030501
  2. TOPROL-XL [Concomitant]
     Route: 048
  3. PREMARIN [Concomitant]
     Route: 048
  4. FUROSEMIDE [Concomitant]
     Route: 048
  5. GLYBURIDE [Concomitant]
     Route: 048
  6. ASPIRIN [Concomitant]
     Route: 048
  7. PLAVIX [Concomitant]
     Route: 048
  8. LIPITOR [Concomitant]
     Route: 048
  9. COZAAR [Concomitant]
     Route: 048

REACTIONS (3)
  - DIARRHOEA [None]
  - INSOMNIA [None]
  - NEURALGIA [None]
